FAERS Safety Report 4463775-1 (Version None)
Quarter: 2004Q4

REPORT INFORMATION
  Report Type: 
  Country: None (occurrence: None)
  Receive Date: 20041001
  Receipt Date: 20040825
  Transmission Date: 20050328
  Serious: Yes (Death)
  Sender: FDA-Public Use
  Company Number: PHHO2004PE11938

PATIENT
  Age: 35 Year
  Sex: Male

DRUGS (2)
  1. GLEEVEC [Suspect]
     Indication: CHRONIC MYELOID LEUKAEMIA
     Dosage: 600 MG, QD
     Route: 048
     Dates: start: 20040525
  2. GLEEVEC [Suspect]
     Dosage: 300 MG, QD
     Route: 048

REACTIONS (4)
  - BLAST CELL PROLIFERATION [None]
  - BRONCHOPNEUMONIA [None]
  - MALIGNANT NEOPLASM PROGRESSION [None]
  - PANCYTOPENIA [None]
